FAERS Safety Report 9503625 (Version 1)
Quarter: 2013Q3

REPORT INFORMATION
  Report Type: Spontaneous
  Country: BE (occurrence: BE)
  Receive Date: 20130906
  Receipt Date: 20130906
  Transmission Date: 20140515
  Serious: Yes (Hospitalization)
  Sender: FDA-Public Use
  Company Number: BE-SANOFI-AVENTIS-2013SA087865

PATIENT
  Age: 63 Year
  Sex: Female

DRUGS (4)
  1. TAXOTERE [Suspect]
     Indication: BREAST CANCER
     Dosage: FORM : VIAL
     Route: 042
  2. TAXOTERE [Suspect]
     Indication: BREAST CANCER
     Dosage: FORM : VIAL
     Route: 042
  3. ZYRTEC [Concomitant]
  4. CORTISONE [Concomitant]

REACTIONS (4)
  - Cyanosis [Unknown]
  - Thermal burn [Unknown]
  - Dyspnoea [Unknown]
  - Neutropenia [Unknown]
